FAERS Safety Report 6321595-7 (Version None)
Quarter: 2009Q3

REPORT INFORMATION
  Report Type: 
  Country: None (occurrence: None)
  Receive Date: 20090824
  Receipt Date: 20090812
  Transmission Date: 20100115
  Serious: Yes (Death)
  Sender: FDA-Public Use
  Company Number: GB-JNJFOC-20090404961

PATIENT
  Age: 75 Year
  Sex: Male
  Weight: 74 kg

DRUGS (15)
  1. REMICADE [Suspect]
     Route: 042
  2. REMICADE [Suspect]
     Indication: RHEUMATOID ARTHRITIS
     Route: 042
  3. METHOTREXATE [Concomitant]
  4. ASPIRIN [Concomitant]
  5. ATENOLOL [Concomitant]
  6. BECLOMETHASONE DIPROPIONATE [Concomitant]
  7. CAPTOPRIL [Concomitant]
  8. FROBEN [Concomitant]
  9. FRUSEMIDE [Concomitant]
  10. GTN SPRAY [Concomitant]
  11. LANSOPRAZOLE [Concomitant]
  12. MST [Concomitant]
  13. PERINDOPRIL [Concomitant]
  14. PRAZSOIN HCL [Concomitant]
  15. TRAMADOL [Concomitant]

REACTIONS (1)
  - MYOCARDIAL ISCHAEMIA [None]
